FAERS Safety Report 8571798-6 (Version None)
Quarter: 2012Q2

REPORT INFORMATION
  Report Type: 
  Country: None (occurrence: None)
  Receive Date: 20120418
  Receipt Date: 20090603
  Transmission Date: 20120825
  Serious: Yes (Other)
  Sender: FDA-Public Use
  Company Number: PHEH2009US05688

PATIENT
  Sex: Female

DRUGS (2)
  1. VERAPAMIL [Concomitant]
  2. DIOVAN HCT [Suspect]
     Dosage: ORAL
     Route: 048

REACTIONS (3)
  - DRUG INEFFECTIVE [None]
  - SWOLLEN TONGUE [None]
  - HYPERSENSITIVITY [None]
